FAERS Safety Report 10264725 (Version 1)
Quarter: 2014Q2

REPORT INFORMATION
  Report Type: Spontaneous
  Country: US (occurrence: None)
  Receive Date: 20140530
  Receipt Date: 20140530
  Transmission Date: 20141212
  Serious: Yes (Disabling, Other)
  Sender: FDA-Public Use
  Company Number: 2013036112

PATIENT
  Age: 49 Year
  Sex: Female
  Weight: 77.11 kg

DRUGS (13)
  1. HIZENTRA (IMMUNOGLOBULIN HUMAN NORMAL) [Suspect]
     Indication: HYPOGLOBULINAEMIA
     Dosage: 1X/ WEEK , IN 4-5 SITES OVER 1-2 HOURS SUBCUTANEOUS)
     Route: 058
  2. NORVASC (AMLODIPINE) [Concomitant]
  3. LISINOPRIL [Concomitant]
  4. OMNARIS (CICLESONIDE) [Concomitant]
  5. ACETAMINOPHEN (PARACETAMOL) [Concomitant]
  6. DIPHENHYDRAMINE [Concomitant]
  7. LIDOCAINE [Concomitant]
  8. EPI PEN (EPINEPHRINE) [Concomitant]
  9. ASTEPRO (AZELASTINE) [Concomitant]
  10. SYMBICORT (BUDESONIDEE W/ FORMOTEROL FUMARATE) [Concomitant]
  11. HYDROCHLOROTHIAZIDE [Concomitant]
  12. ALBUTEROL (SALBUTAMOL) [Concomitant]
  13. PROAIR (SALBUTAMOL SULFATE) [Concomitant]

REACTIONS (1)
  - Headache [None]
